FAERS Safety Report 17852184 (Version 1)
Quarter: 2020Q2

REPORT INFORMATION
  Report Type: Spontaneous
  Country: CN (occurrence: CN)
  Receive Date: 20200602
  Receipt Date: 20200602
  Transmission Date: 20200714
  Serious: Yes (Other)
  Sender: FDA-Public Use
  Company Number: CN-ROCHE-2610008

PATIENT
  Age: 46 Year
  Sex: Female

DRUGS (4)
  1. CICLOSPORIN [Concomitant]
     Active Substance: CYCLOSPORINE
     Indication: PEMPHIGUS
     Route: 065
     Dates: start: 20200110
  2. MYCOPHENOLATE MOFETIL. [Suspect]
     Active Substance: MYCOPHENOLATE MOFETIL
     Indication: PEMPHIGUS
     Route: 065
     Dates: start: 20200110
  3. PREDNISONE. [Concomitant]
     Active Substance: PREDNISONE
     Indication: PEMPHIGUS
     Dosage: 50MG PER DAY
     Route: 065
     Dates: start: 20200110
  4. CYCLOPHOSPHAMIDE. [Concomitant]
     Active Substance: CYCLOPHOSPHAMIDE
     Indication: PEMPHIGUS
     Route: 065
     Dates: start: 20200110

REACTIONS (5)
  - Pneumonia [Unknown]
  - Diabetes mellitus [Unknown]
  - Off label use [Unknown]
  - Obesity [Unknown]
  - Intentional product use issue [Unknown]
